FAERS Safety Report 10133307 (Version 1)
Quarter: 2014Q2

REPORT INFORMATION
  Report Type: Spontaneous
  Country: NL (occurrence: NL)
  Receive Date: 20140428
  Receipt Date: 20140428
  Transmission Date: 20141212
  Serious: Yes (Other)
  Sender: FDA-Public Use
  Company Number: NL-PFIZER INC-2014112071

PATIENT
  Age: 55 Year
  Sex: Female
  Weight: 70 kg

DRUGS (2)
  1. SOMAVERT [Suspect]
     Indication: ACROMEGALY
     Dosage: 10 MG, 2X/WEEK
     Route: 058
     Dates: start: 20140128
  2. SANDOSTATINE [Concomitant]
     Indication: ACROMEGALY
     Dosage: UNK
     Route: 030

REACTIONS (5)
  - Herpes zoster [Unknown]
  - Abdominal distension [Unknown]
  - Local swelling [Unknown]
  - Malaise [Unknown]
  - Vomiting [Unknown]
